FAERS Safety Report 20246813 (Version 1)
Quarter: 2021Q4

REPORT INFORMATION
  Report Type: Other
  Country: None (occurrence: US)
  Receive Date: 20211229
  Receipt Date: 20211229
  Transmission Date: 20220303
  Serious: No
  Sender: FDA-Public Use
  Company Number: US-Fagron Sterile Services-2123457

PATIENT

DRUGS (1)
  1. AVASTIN [Suspect]
     Active Substance: BEVACIZUMAB

REACTIONS (1)
  - Endophthalmitis [None]
